FAERS Safety Report 4264364-4 (Version None)
Quarter: 2004Q1

REPORT INFORMATION
  Report Type: 
  Country: None (occurrence: None)
  Receive Date: 20040105
  Receipt Date: 20031219
  Transmission Date: 20041129
  Serious: Yes (Hospitalization)
  Sender: FDA-Public Use
  Company Number: 189080

PATIENT
  Age: 45 Year
  Sex: Female
  Weight: 82.5547 kg

DRUGS (4)
  1. AVONEX [Suspect]
     Indication: MULTIPLE SCLEROSIS
     Dosage: 30 MCG QW IM
     Route: 030
     Dates: start: 19960101, end: 20031001
  2. AVONEX [Suspect]
     Indication: MULTIPLE SCLEROSIS
     Dosage: 30 MCG QW IM
     Route: 030
     Dates: start: 20031001
  3. GLUCOPHAGE ^UNS^ [Concomitant]
  4. MEDICATION (NOS) [Concomitant]

REACTIONS (6)
  - ASTHMA [None]
  - ENDOMETRIOMA [None]
  - ENDOMETRIOSIS [None]
  - HYPERTENSION [None]
  - NASOPHARYNGITIS [None]
  - SINUSITIS [None]
